FAERS Safety Report 11335477 (Version 1)
Quarter: 2015Q3

REPORT INFORMATION
  Report Type: Spontaneous
  Country: US (occurrence: US)
  Receive Date: 20150804
  Receipt Date: 20150804
  Transmission Date: 20151125
  Serious: No
  Sender: FDA-Public Use
  Company Number: US-ELI_LILLY_AND_COMPANY-US201507011133

PATIENT
  Sex: Female

DRUGS (4)
  1. HUMULIN N [Suspect]
     Active Substance: INSULIN HUMAN
     Indication: PRODUCT USED FOR UNKNOWN INDICATION
     Dosage: UNK
     Route: 065
  2. HUMALOG [Suspect]
     Active Substance: INSULIN LISPRO
     Indication: PRODUCT USED FOR UNKNOWN INDICATION
     Dosage: 9 DF, EACH MORNING
     Route: 065
     Dates: start: 20150623
  3. METFORMIN [Concomitant]
     Active Substance: METFORMIN HYDROCHLORIDE
     Dosage: UNK
  4. HUMALOG [Suspect]
     Active Substance: INSULIN LISPRO
     Dosage: 6 DF, UNK
     Route: 065
     Dates: start: 20150623

REACTIONS (1)
  - Maternal exposure during pregnancy [Unknown]
